FAERS Safety Report 9347992 (Version 1)
Quarter: 2013Q2

REPORT INFORMATION
  Report Type: Spontaneous
  Country: CN (occurrence: CN)
  Receive Date: 20130614
  Receipt Date: 20130614
  Transmission Date: 20140414
  Serious: Yes (Other)
  Sender: FDA-Public Use
  Company Number: CN-JNJFOC-20130603013

PATIENT
  Sex: Male
  Weight: 72 kg

DRUGS (1)
  1. TYLENOL COLD [Suspect]
     Indication: NASOPHARYNGITIS
     Route: 048
     Dates: start: 20100101, end: 20121107

REACTIONS (3)
  - Drug dependence [Recovering/Resolving]
  - Renal impairment [Unknown]
  - Pruritus generalised [Recovered/Resolved]
